FAERS Safety Report 5913998-7 (Version None)
Quarter: 2008Q4

REPORT INFORMATION
  Report Type: 
  Country: None (occurrence: None)
  Receive Date: 20081009
  Receipt Date: 20081007
  Transmission Date: 20090506
  Serious: Yes (Death, Hospitalization, Other)
  Sender: FDA-Public Use
  Company Number: US-BAYER-200821419NA

PATIENT
  Age: 81 Year
  Sex: Male
  Weight: 89 kg

DRUGS (17)
  1. SORAFENIB [Suspect]
     Indication: PROSTATE CANCER
     Dosage: TOTAL DAILY DOSE: 200 MG  UNIT DOSE: 200 MG
     Route: 048
     Dates: start: 20080505, end: 20080511
  2. SORAFENIB [Suspect]
     Dosage: TOTAL DAILY DOSE: 800 MG  UNIT DOSE: 200 MG
     Route: 048
     Dates: start: 20080421, end: 20080428
  3. SORAFENIB [Suspect]
     Dosage: TOTAL DAILY DOSE: 400 MG  UNIT DOSE: 200 MG
     Route: 048
     Dates: start: 20080512, end: 20080608
  4. PREDNISONE TAB [Concomitant]
     Route: 048
  5. PREDNISONE TAB [Concomitant]
     Dosage: TOTAL DAILY DOSE: 10 MG
     Route: 048
     Dates: end: 20080428
  6. ASPIRIN [Concomitant]
  7. MULTI-VITAMIN [Concomitant]
  8. TAXOTERE [Concomitant]
     Route: 042
     Dates: start: 20071001, end: 20080410
  9. TAXOTERE [Concomitant]
     Route: 042
  10. HYDROMORPHONE HCL [Concomitant]
  11. ONDANSETRON [Concomitant]
  12. NEULASTA [Concomitant]
  13. VERSED [Concomitant]
     Indication: SEDATIVE THERAPY
     Dates: start: 20080429, end: 20080429
  14. FENTANYL [Concomitant]
     Indication: SEDATIVE THERAPY
     Dosage: TOTAL DAILY DOSE: 25 ?G
     Dates: start: 20080429, end: 20080429
  15. BREVITAL SODIUM [Concomitant]
     Indication: SEDATIVE THERAPY
     Dates: start: 20080429, end: 20080429
  16. CHROMAGEN FORTE [Concomitant]
  17. VITAMIN B-12 [Concomitant]

REACTIONS (6)
  - ATRIAL FIBRILLATION [None]
  - ATRIAL FLUTTER [None]
  - DYSURIA [None]
  - HAEMOGLOBIN DECREASED [None]
  - PNEUMONIA [None]
  - PROSTATE CANCER [None]
